FAERS Safety Report 5240153-9 (Version None)
Quarter: 2007Q1

REPORT INFORMATION
  Report Type: 
  Country: None (occurrence: None)
  Receive Date: 20070216
  Receipt Date: 20070208
  Transmission Date: 20070707
  Serious: Yes (Other)
  Sender: FDA-Public Use
  Company Number: US-PFIZER INC-2007011412

PATIENT
  Sex: Female
  Weight: 79.4 kg

DRUGS (3)
  1. GENOTROPIN [Suspect]
     Indication: GROWTH HORMONE DEFICIENCY
     Dosage: DAILY DOSE:1.4MG-FREQ:DAILY
  2. CYTOMEL [Concomitant]
     Indication: THYROID DISORDER
  3. EVISTA [Concomitant]
     Indication: MENOPAUSAL SYMPTOMS

REACTIONS (6)
  - DYSPNOEA [None]
  - HEADACHE [None]
  - INSULIN-LIKE GROWTH FACTOR INCREASED [None]
  - NAUSEA [None]
  - PULMONARY HYPERTENSION [None]
  - SLEEP APNOEA SYNDROME [None]
